FAERS Safety Report 9143854 (Version 1)
Quarter: 2013Q1

REPORT INFORMATION
  Report Type: Spontaneous
  Country: DE (occurrence: DE)
  Receive Date: 20130306
  Receipt Date: 20130306
  Transmission Date: 20140127
  Serious: Yes (Other)
  Sender: FDA-Public Use
  Company Number: GXKR2013DE001026

PATIENT
  Age: 15 Year
  Sex: Male
  Weight: 60 kg

DRUGS (1)
  1. CEFUROXIM [Suspect]
     Indication: OTITIS MEDIA
     Dosage: 500 MG, UNK, 1000 MG/D
     Route: 048
     Dates: start: 20130218, end: 20130228

REACTIONS (2)
  - Depression suicidal [Recovering/Resolving]
  - Aggression [Recovering/Resolving]
